FAERS Safety Report 24713143 (Version 1)
Quarter: 2024Q4

REPORT INFORMATION
  Report Type: Spontaneous
  Country: NO (occurrence: NO)
  Receive Date: 20241209
  Receipt Date: 20241209
  Transmission Date: 20250115
  Serious: Yes (Death)
  Sender: MYLAN
  Company Number: None

PATIENT
  Age: 67 Year
  Sex: Male

DRUGS (2)
  1. OLANZAPINE [Suspect]
     Active Substance: OLANZAPINE
     Indication: Depression suicidal
     Dosage: UNK, THE REPORTER DOES NOT HAVE ACCESS TO THE JOURNAL SYSTEMS OF THE HOSPITAL AND THE REPORTER
     Route: 065
  2. OLANZAPINE [Suspect]
     Active Substance: OLANZAPINE
     Indication: Major depression

REACTIONS (5)
  - Oedema [Fatal]
  - Jaundice [Fatal]
  - General physical health deterioration [Fatal]
  - Hepatic failure [Fatal]
  - Hepatic cirrhosis [Fatal]

NARRATIVE: CASE EVENT DATE: 20240815
